FAERS Safety Report 19047373 (Version 1)
Quarter: 2021Q1

REPORT INFORMATION
  Report Type: Spontaneous
  Country: IN (occurrence: IN)
  Receive Date: 20210323
  Receipt Date: 20210323
  Transmission Date: 20210420
  Serious: Yes (Death, Hospitalization, Congenital Anomaly, Other)
  Sender: FDA-Public Use
  Company Number: IN-CIPLA LTD.-2021IN02290

PATIENT

DRUGS (2)
  1. RAMIPRIL. [Suspect]
     Active Substance: RAMIPRIL
     Dosage: UNK
     Route: 064
  2. CARVEDILOL. [Suspect]
     Active Substance: CARVEDILOL
     Dosage: UNK
     Route: 064

REACTIONS (8)
  - Death neonatal [Fatal]
  - Congenital megaureter [Unknown]
  - Foetal exposure during pregnancy [Unknown]
  - Multiple congenital abnormalities [Unknown]
  - Congenital hydronephrosis [Unknown]
  - Low birth weight baby [Unknown]
  - Apgar score low [Unknown]
  - Urethral valves [Unknown]
